FAERS Safety Report 10744867 (Version 2)
Quarter: 2015Q1

REPORT INFORMATION
  Report Type: Spontaneous
  Country: CA (occurrence: None)
  Receive Date: 20150126
  Receipt Date: 20150309
  Transmission Date: 20150721
  Serious: Yes (Life-Threatening, Hospitalization, Other)
  Sender: FDA-Public Use
  Company Number: AMAG201500024

PATIENT
  Age: 67 Year
  Sex: Female
  Weight: 85 kg

DRUGS (1)
  1. FERAHEME [Suspect]
     Active Substance: FERUMOXYTOL NON-STOICHIOMETRIC MAGNETITE
     Indication: IRON DEFICIENCY
     Dosage: SINGLE, INFUSION

REACTIONS (7)
  - Feeling abnormal [None]
  - Abdominal pain [None]
  - Pulse absent [None]
  - Unresponsive to stimuli [None]
  - Dizziness [None]
  - Cyanosis [None]
  - Seizure [None]

NARRATIVE: CASE EVENT DATE: 20140918
